FAERS Safety Report 5279317-7 (Version None)
Quarter: 2007Q1

REPORT INFORMATION
  Report Type: 
  Country: None (occurrence: None)
  Receive Date: 20070328
  Receipt Date: 20060421
  Transmission Date: 20070707
  Serious: No
  Sender: FDA-Public Use
  Company Number: US-AMGEN-US176770

PATIENT
  Sex: Female

DRUGS (6)
  1. NEULASTA [Suspect]
     Indication: CHEMOTHERAPY
     Route: 058
     Dates: start: 20060101
  2. TAXOL [Concomitant]
     Route: 065
  3. CARBOPLATIN [Concomitant]
     Route: 065
  4. ZOFRAN [Concomitant]
     Route: 065
  5. CORTICOSTEROIDS [Concomitant]
     Route: 065
  6. HERBAL SUPPLEMENT SUPPLEMENT NOS [Concomitant]
     Route: 065

REACTIONS (4)
  - ABASIA [None]
  - BACK PAIN [None]
  - CARBOHYDRATE ANTIGEN 125 INCREASED [None]
  - WHITE BLOOD CELL COUNT DECREASED [None]
